FAERS Safety Report 5409640-4 (Version None)
Quarter: 2007Q3

REPORT INFORMATION
  Report Type: 
  Country: None (occurrence: None)
  Receive Date: 20070807
  Receipt Date: 20070807
  Transmission Date: 20080115
  Serious: Yes (Hospitalization)
  Sender: FDA-Public Use
  Company Number: None

PATIENT
  Age: 71 Year
  Sex: Female

DRUGS (10)
  1. METFORMIN HCL [Suspect]
     Indication: TYPE 2 DIABETES MELLITUS
     Dosage: 500 MG DAILY PO
     Route: 048
  2. NORVASC [Concomitant]
  3. ASPIRIN [Concomitant]
  4. LIPITOR [Concomitant]
  5. HEPARIN [Concomitant]
  6. METFORMIN HCL [Concomitant]
  7. METOPROLOL SUCCINATE [Concomitant]
  8. PROTONIX [Concomitant]
  9. QUINAPRIL HCL [Concomitant]
  10. SPIRONOLACTONE [Concomitant]

REACTIONS (1)
  - SYNCOPE [None]
